FAERS Safety Report 9885035 (Version 2)
Quarter: 2014Q1

REPORT INFORMATION
  Report Type: Report from Study
  Country: US (occurrence: US)
  Receive Date: 20140210
  Receipt Date: 20140310
  Transmission Date: 20141002
  Serious: Yes (Hospitalization)
  Sender: FDA-Public Use
  Company Number: US-JNJFOC-20140201802

PATIENT
  Age: 43 Year
  Sex: Female
  Weight: 190 kg

DRUGS (8)
  1. REMICADE [Suspect]
     Indication: CROHN^S DISEASE
     Route: 042
     Dates: start: 20130701, end: 20131120
  2. FENTANYL [Concomitant]
     Indication: ARTHRITIS
     Dosage: 75MCG PATCH 1 IN 72 HOURS TD
     Route: 058
  3. ZOLOFT [Concomitant]
     Indication: DEPRESSION
     Route: 048
     Dates: start: 2013
  4. ZOLOFT [Concomitant]
     Indication: DEPRESSION
     Route: 048
     Dates: start: 2013, end: 2013
  5. FLEXERIL [Concomitant]
     Route: 065
     Dates: start: 2006
  6. VALIUM [Concomitant]
     Route: 065
     Dates: start: 2009
  7. FOLIC ACID [Concomitant]
     Route: 065
     Dates: start: 2010
  8. PREDNISONE [Concomitant]
     Route: 065
     Dates: start: 2011, end: 201311

REACTIONS (9)
  - Sensory loss [Not Recovered/Not Resolved]
  - Dyspnoea [Not Recovered/Not Resolved]
  - Chest pain [Not Recovered/Not Resolved]
  - Fatigue [Not Recovered/Not Resolved]
  - Vitreous floaters [Not Recovered/Not Resolved]
  - Visual acuity reduced [Not Recovered/Not Resolved]
  - Vomiting [Not Recovered/Not Resolved]
  - Alopecia [Not Recovered/Not Resolved]
  - Pain [Not Recovered/Not Resolved]
